FAERS Safety Report 7377306-X (Version None)
Quarter: 2011Q1

REPORT INFORMATION
  Report Type: 
  Country: None (occurrence: None)
  Receive Date: 20110316
  Receipt Date: 20110311
  Transmission Date: 20110831
  Serious: Yes (Death)
  Sender: FDA-Public Use
  Company Number: 2011SP011492

PATIENT
  Age: 34 Year
  Sex: Female

DRUGS (1)
  1. MIRTAZAPINE [Suspect]
     Indication: DEPRESSION
     Dosage: 15 MG; ONCE; PO
     Route: 048
     Dates: start: 20110225, end: 20110225

REACTIONS (1)
  - COMPLETED SUICIDE [None]
